FAERS Safety Report 17785915 (Version 1)
Quarter: 2020Q2

REPORT INFORMATION
  Report Type: Report from Study
  Country: US (occurrence: US)
  Receive Date: 20200513
  Receipt Date: 20200513
  Transmission Date: 20200714
  Serious: Yes (Other)
  Sender: FDA-Public Use
  Company Number: US-ACTELION-A-NJ2019-196143

PATIENT
  Sex: Male
  Weight: 121.54 kg

DRUGS (5)
  1. UPTRAVI [Suspect]
     Active Substance: SELEXIPAG
     Indication: PULMONARY ARTERIAL HYPERTENSION
     Dosage: 1400 MCG IN AM, 1200 MCG IN PM
     Route: 048
  2. UPTRAVI [Suspect]
     Active Substance: SELEXIPAG
     Dosage: 1200 MCG, BID
     Route: 048
  3. ADCIRCA [Concomitant]
     Active Substance: TADALAFIL
  4. UPTRAVI [Suspect]
     Active Substance: SELEXIPAG
     Dosage: 1600 MCG, BID
     Route: 048
  5. LETAIRIS [Concomitant]
     Active Substance: AMBRISENTAN

REACTIONS (8)
  - Therapy interrupted [Unknown]
  - Arthralgia [Unknown]
  - Orthopaedic procedure [Unknown]
  - Swelling [Recovering/Resolving]
  - Arthropathy [Unknown]
  - Drug intolerance [Unknown]
  - Pain [Unknown]
  - Malaise [Recovering/Resolving]
